FAERS Safety Report 26133877 (Version 2)
Quarter: 2025Q4

REPORT INFORMATION
  Report Type: Report from Study
  Country: KR (occurrence: KR)
  Receive Date: 20251209
  Receipt Date: 20251210
  Transmission Date: 20260117
  Serious: Yes (Death, Hospitalization)
  Sender: ABBVIE
  Company Number: KR-ABBVIE-5646388

PATIENT
  Age: 81 Year
  Sex: Male
  Weight: 50 kg

DRUGS (12)
  1. VENETOCLAX [Suspect]
     Active Substance: VENETOCLAX
     Indication: Acute myeloid leukaemia
     Route: 048
     Dates: start: 20231101, end: 20231129
  2. VENETOCLAX [Suspect]
     Active Substance: VENETOCLAX
     Indication: Acute myeloid leukaemia
     Route: 048
     Dates: start: 20231206, end: 20240104
  3. VENETOCLAX [Suspect]
     Active Substance: VENETOCLAX
     Indication: Acute myeloid leukaemia
     Dosage: 0 MG
     Route: 048
     Dates: start: 20231130, end: 20231205
  4. NOXAFIL [Concomitant]
     Active Substance: POSACONAZOLE
     Indication: Infection prophylaxis
     Route: 048
     Dates: start: 20231101, end: 20231129
  5. Vizadakin [Concomitant]
     Indication: Acute myeloid leukaemia
     Route: 058
     Dates: start: 20231211, end: 20231214
  6. Vizadakin [Concomitant]
     Indication: Acute myeloid leukaemia
     Route: 058
     Dates: start: 20231206, end: 20231208
  7. Vizadakin [Concomitant]
     Indication: Acute myeloid leukaemia
     Route: 058
     Dates: start: 20231101, end: 20231117
  8. Mago [Concomitant]
     Indication: Constipation
     Route: 048
     Dates: start: 20231117, end: 20231122
  9. HARNAL [Concomitant]
     Active Substance: TAMSULOSIN HYDROCHLORIDE
     Indication: Benign prostatic hyperplasia
     Route: 048
     Dates: start: 20231122
  10. Dulackhan [Concomitant]
     Indication: Constipation
     Dosage: TIME INTERVAL: 0.33333333 DAYS: SYRUP
     Route: 048
     Dates: start: 20231129
  11. LEVOFLOXACIN [Concomitant]
     Active Substance: LEVOFLOXACIN
     Indication: Infection prophylaxis
     Route: 048
     Dates: start: 20231101, end: 20231129
  12. ALLOPURINOL [Concomitant]
     Active Substance: ALLOPURINOL
     Indication: Prophylaxis
     Dosage: TIME INTERVAL: 0.33333333 DAYS
     Route: 048
     Dates: start: 20231101, end: 20231122

REACTIONS (2)
  - Disease progression [Fatal]
  - Asthenia [Recovered/Resolved]

NARRATIVE: CASE EVENT DATE: 20231215
